FAERS Safety Report 4688405-5 (Version None)
Quarter: 2005Q2

REPORT INFORMATION
  Report Type: 
  Country: None (occurrence: None)
  Receive Date: 20050610
  Receipt Date: 20050610
  Transmission Date: 20051028
  Serious: Yes (Death)
  Sender: FDA-Public Use
  Company Number: None

PATIENT
  Age: 55 Year
  Sex: Male
  Weight: 134.5 kg

DRUGS (14)
  1. ETANERCEPT [Suspect]
     Dosage: UNKNOWN
     Route: 065
  2. ALLOPURINOL [Concomitant]
  3. CHLORPHENIRAMINE MALEATE [Concomitant]
  4. CLOTRIMAZOLE [Concomitant]
  5. GLIPIZIDE [Concomitant]
  6. HYDROXYZINE PAMOATE [Concomitant]
  7. IBUPROFEN [Concomitant]
  8. LISINOPRIL [Concomitant]
  9. METFORMIN HCL [Concomitant]
  10. NORTRIPTYLINE HCL [Concomitant]
  11. OMEPRAZOLE [Concomitant]
  12. ROSIGLITAZONE MALEATE [Concomitant]
  13. TRAVOPROST [Concomitant]
  14. TRIAMCINOLONE ACETONIDE [Concomitant]

REACTIONS (11)
  - ACUTE RESPIRATORY DISTRESS SYNDROME [None]
  - ANAEMIA [None]
  - ANURIA [None]
  - FUNGAL INFECTION [None]
  - HAEMODIALYSIS [None]
  - LUNG INFILTRATION [None]
  - PNEUMONIA [None]
  - RASH [None]
  - RENAL TUBULAR NECROSIS [None]
  - SEPSIS [None]
  - VIRAL INFECTION [None]
